FAERS Safety Report 7764510-1 (Version None)
Quarter: 2011Q3

REPORT INFORMATION
  Report Type: 
  Country: None (occurrence: None)
  Receive Date: 20110921
  Receipt Date: 20110323
  Transmission Date: 20111222
  Serious: No
  Sender: FDA-Public Use
  Company Number: US-BAYER-2011-027381

PATIENT
  Age: 74 Year
  Sex: Female
  Weight: 70 kg

DRUGS (6)
  1. AMBIEN [Concomitant]
  2. TRAMADOL HCL [Concomitant]
  3. PROTONIX [Concomitant]
  4. METOPROLOL TARTRATE [Concomitant]
  5. ALEVE (CAPLET) [Suspect]
     Indication: ANALGESIC THERAPY
     Dosage: 1100 MG, QD
     Route: 048
     Dates: start: 20110301
  6. ZYPREXA [Concomitant]

REACTIONS (1)
  - NO ADVERSE EVENT [None]
